FAERS Safety Report 11204191 (Version 1)
Quarter: 2015Q2

REPORT INFORMATION
  Report Type: Spontaneous
  Country: US (occurrence: US)
  Receive Date: 20150620
  Receipt Date: 20150620
  Transmission Date: 20150821
  Serious: Yes (Other)
  Sender: FDA-Public Use
  Company Number: US-AUROBINDO-AUR-APL-2015-05211

PATIENT
  Age: 7 Year
  Sex: Male

DRUGS (1)
  1. TOPIRAMATE 25MG [Suspect]
     Active Substance: TOPIRAMATE
     Indication: MIGRAINE
     Route: 065

REACTIONS (6)
  - Anterior chamber disorder [Recovered/Resolved]
  - Maculopathy [Recovered/Resolved]
  - Vision blurred [Recovered/Resolved]
  - Retinal disorder [Recovered/Resolved]
  - Toxicity to various agents [Recovered/Resolved]
  - Myopia [Recovered/Resolved]
